FAERS Safety Report 13814945 (Version 2)
Quarter: 2017Q3

REPORT INFORMATION
  Report Type: Spontaneous
  Country: PT (occurrence: PT)
  Receive Date: 20170731
  Receipt Date: 20170829
  Transmission Date: 20171127
  Serious: Yes (Hospitalization, Other)
  Sender: FDA-Public Use
  Company Number: PT-MYLANLABS-2017M1044203

PATIENT

DRUGS (5)
  1. ABACAVIR + LAMIVUDINA MYLAN [Suspect]
     Active Substance: ABACAVIR\LAMIVUDINE
     Indication: HIV INFECTION
     Route: 048
     Dates: start: 20170619, end: 20170629
  2. VALPROATO SEMISODICO [Concomitant]
     Active Substance: DIVALPROEX SODIUM
     Route: 048
  3. ALPRAZOLAM. [Concomitant]
     Active Substance: ALPRAZOLAM
     Route: 048
  4. TIVICAY [Suspect]
     Active Substance: DOLUTEGRAVIR SODIUM
     Indication: HIV INFECTION
     Route: 048
     Dates: start: 20170619, end: 20170629
  5. QUETIAPINA [Concomitant]
     Active Substance: QUETIAPINE
     Route: 048

REACTIONS (6)
  - Eosinophilia [Recovering/Resolving]
  - Lymphadenitis [Recovering/Resolving]
  - Hepatosplenomegaly [Recovering/Resolving]
  - Drug reaction with eosinophilia and systemic symptoms [Recovering/Resolving]
  - Pyrexia [Recovered/Resolved]
  - Rash [Recovering/Resolving]

NARRATIVE: CASE EVENT DATE: 20170626
